FAERS Safety Report 24362795 (Version 2)
Quarter: 2024Q4

REPORT INFORMATION
  Report Type: Spontaneous
  Country: BE (occurrence: BE)
  Receive Date: 20240925
  Receipt Date: 20241022
  Transmission Date: 20250115
  Serious: Yes (Other)
  Sender: SK LIFE SCIENCE
  Company Number: BE-ACRAF SpA-2024-035841

PATIENT

DRUGS (2)
  1. XCOPRI [Interacting]
     Active Substance: CENOBAMATE
     Indication: Partial seizures
     Dosage: UNK
     Route: 065
  2. CANNABIDIOL [Interacting]
     Active Substance: CANNABIDIOL
     Indication: Partial seizures
     Dosage: UNK
     Route: 065

REACTIONS (2)
  - Oculogyric crisis [Unknown]
  - Drug interaction [Unknown]
